FAERS Safety Report 4882370-3 (Version None)
Quarter: 2005Q4

REPORT INFORMATION
  Report Type: 
  Country: None (occurrence: None)
  Receive Date: 20051201
  Receipt Date: 20050726
  Transmission Date: 20060501
  Serious: No
  Sender: FDA-Public Use
  Company Number: 2005PV000600

PATIENT
  Age: 66 Year
  Sex: Male
  Weight: 109.7705 kg

DRUGS (10)
  1. BYETTA [Suspect]
     Indication: DIABETES MELLITUS NON-INSULIN-DEPENDENT
     Dosage: 5 MCG;BID;SC
     Route: 058
     Dates: start: 20050720
  2. TIKOSYN [Concomitant]
  3. AMARYL [Concomitant]
  4. DIOVAN [Concomitant]
  5. WARFARIN SODIUM [Concomitant]
  6. LIPITOR [Concomitant]
  7. PROZAC [Concomitant]
  8. FLOMAX [Concomitant]
  9. FOLIC ACID [Concomitant]
  10. METOPROLOL [Concomitant]

REACTIONS (6)
  - BLOOD GLUCOSE DECREASED [None]
  - BLOOD GLUCOSE INCREASED [None]
  - DIZZINESS [None]
  - FATIGUE [None]
  - HYPERSOMNIA [None]
  - NAUSEA [None]
